FAERS Safety Report 6753180-7 (Version None)
Quarter: 2010Q2

REPORT INFORMATION
  Report Type: 
  Country: None (occurrence: None)
  Receive Date: 20100526
  Receipt Date: 20100420
  Transmission Date: 20101027
  Serious: No
  Sender: FDA-Public Use
  Company Number: 307394

PATIENT
  Age: 42 Year
  Sex: Female

DRUGS (1)
  1. VICTOZA [Suspect]
     Indication: GLUCOSE TOLERANCE IMPAIRED
     Dosage: 1.8 MG, QD, SUBCUTANEOUS
     Route: 058
     Dates: start: 20100301, end: 20100401

REACTIONS (3)
  - ABDOMINAL DISCOMFORT [None]
  - DYSPEPSIA [None]
  - HYPERCHLORHYDRIA [None]
